FAERS Safety Report 24232006 (Version 1)
Quarter: 2024Q3

REPORT INFORMATION
  Report Type: Spontaneous
  Country: US (occurrence: US)
  Receive Date: 20240821
  Receipt Date: 20240821
  Transmission Date: 20241017
  Serious: Yes (Other)
  Sender: MACLEODS
  Company Number: US-MACLEODS PHARMA-MAC2024048875

PATIENT

DRUGS (2)
  1. LIDOCAINE [Suspect]
     Active Substance: LIDOCAINE
     Indication: Anaesthesia
     Dosage: 0.7 UG/ML
     Route: 058
  2. LIDOCAINE [Suspect]
     Active Substance: LIDOCAINE
     Indication: Circumcision

REACTIONS (1)
  - Generalised tonic-clonic seizure [Recovered/Resolved]
